FAERS Safety Report 7921378-8 (Version None)
Quarter: 2011Q4

REPORT INFORMATION
  Report Type: 
  Country: None (occurrence: None)
  Receive Date: 20111117
  Receipt Date: 20111114
  Transmission Date: 20120403
  Serious: Yes (Hospitalization)
  Sender: FDA-Public Use
  Company Number: US-VERTEX PHARMACEUTICALS INC.-AE-2011-002559

PATIENT
  Sex: Male
  Weight: 65.376 kg

DRUGS (3)
  1. INCIVEK [Suspect]
     Indication: HEPATITIS C
     Route: 048
     Dates: start: 20111003
  2. PEGASYS [Concomitant]
     Indication: HEPATITIS C
     Route: 058
     Dates: start: 20111003
  3. RIBAVIRIN [Concomitant]
     Indication: HEPATITIS C
     Route: 048
     Dates: start: 20111003

REACTIONS (7)
  - ASTHENIA [None]
  - CHILLS [None]
  - NAUSEA [None]
  - VOMITING [None]
  - DIARRHOEA [None]
  - RENAL FAILURE ACUTE [None]
  - PYREXIA [None]
